FAERS Safety Report 7692845-X (Version None)
Quarter: 2011Q3

REPORT INFORMATION
  Report Type: 
  Country: None (occurrence: None)
  Receive Date: 20110819
  Receipt Date: 20110811
  Transmission Date: 20111222
  Serious: Yes (Other)
  Sender: FDA-Public Use
  Company Number: AU-JNJFOC-20110806351

PATIENT
  Age: 81 Year
  Sex: Male
  Weight: 104 kg

DRUGS (6)
  1. PERINDOPRIL ERBUMINE [Concomitant]
  2. PRAVACHOL [Concomitant]
  3. METFORMIN HCL [Concomitant]
  4. XARELTO [Suspect]
     Indication: THROMBOSIS PROPHYLAXIS
     Route: 048
     Dates: start: 20110701, end: 20110701
  5. ACETYLSALICYLIC ACID SRT [Concomitant]
  6. METOPROLOL [Concomitant]

REACTIONS (1)
  - ISCHAEMIC STROKE [None]
